FAERS Safety Report 17001042 (Version 7)
Quarter: 2020Q3

REPORT INFORMATION
  Report Type: Report from Study
  Country: US (occurrence: US)
  Receive Date: 20191106
  Receipt Date: 20200804
  Transmission Date: 20201102
  Serious: Yes (Hospitalization)
  Sender: FDA-Public Use
  Company Number: US-ACTELION-A-NJ2019-197759

PATIENT
  Age: 53 Year
  Sex: Female
  Weight: 78.01 kg

DRUGS (2)
  1. OPSUMIT [Suspect]
     Active Substance: MACITENTAN
     Indication: PULMONARY ARTERIAL HYPERTENSION
     Dosage: 10 MG, QD
     Route: 048
     Dates: start: 20170320, end: 20200624
  2. REMODULIN [Concomitant]
     Active Substance: TREPROSTINIL

REACTIONS (6)
  - Procedural complication [Unknown]
  - Heart and lung transplant [Recovered/Resolved]
  - Transplant evaluation [Unknown]
  - Hospitalisation [Unknown]
  - Cholecystectomy [Unknown]
  - Lung disorder [Unknown]

NARRATIVE: CASE EVENT DATE: 20200224
